FAERS Safety Report 7019530-1 (Version None)
Quarter: 2010Q3

REPORT INFORMATION
  Report Type: 
  Country: None (occurrence: None)
  Receive Date: 20100923
  Receipt Date: 20100908
  Transmission Date: 20110219
  Serious: Yes (Other)
  Sender: FDA-Public Use
  Company Number: CIP10002227

PATIENT
  Age: 72 Year
  Sex: Female

DRUGS (7)
  1. RISEDRONATE SODIUM [Suspect]
     Indication: OSTEOPOROSIS
     Dosage: 35 MG ONCE WEEKLY, ORAL
     Route: 048
  2. GLUCOCORTICOIDS [Concomitant]
  3. ESOMEPRAZOLE (ESCOMEPRAZOLE) [Concomitant]
  4. SIMVASTATIN [Concomitant]
  5. CAPTOPRIL [Concomitant]
  6. IRBESARTAN [Concomitant]
  7. CLOPIDOGREL [Concomitant]

REACTIONS (3)
  - ARTHRALGIA [None]
  - FEMUR FRACTURE [None]
  - PATHOLOGICAL FRACTURE [None]
